FAERS Safety Report 16872673 (Version 5)
Quarter: 2020Q1

REPORT INFORMATION
  Report Type: Spontaneous
  Country: FR (occurrence: FR)
  Receive Date: 20191001
  Receipt Date: 20200324
  Transmission Date: 20200409
  Serious: Yes (Hospitalization, Other)
  Sender: FDA-Public Use
  Company Number: FR-MYLANLABS-2019M1090859

PATIENT
  Age: 72 Year
  Sex: Female
  Weight: 75 kg

DRUGS (18)
  1. ATORVASTATINE PFIZER [Concomitant]
     Active Substance: ATORVASTATIN
     Dosage: UNK
  2. CHOLECALCIFEROL [Concomitant]
     Active Substance: CHOLECALCIFEROL
     Dosage: 1-0-0
  3. DOLIPRAN                           /00020001/ [Concomitant]
     Dosage: UNK, PRN
  4. COKENZEN [Concomitant]
     Active Substance: CANDESARTAN CILEXETIL\HYDROCHLOROTHIAZIDE
     Dosage: SWITCHED FROM CANDESARTAN HYDROCHLOROTHIAZIDE (NOS)
  5. VALSARTAN/HYDROCHLOROTHIAZIDE TEVA [Suspect]
     Active Substance: HYDROCHLOROTHIAZIDE\VALSARTAN
     Dosage: UNK
  6. LERCANIDIPINE TEVA [Concomitant]
     Dosage: 1-0-0
  7. ATORVASTATINE PFIZER [Concomitant]
     Active Substance: ATORVASTATIN
     Dosage: 0-0-1
  8. DOLIPRAN                           /00020001/ [Concomitant]
     Dosage: UNK
  9. KENZEN [Concomitant]
     Active Substance: CANDESARTAN CILEXETIL
     Dosage: 1-0-0
  10. VALSARTAN/HCT MYLAN 160 MG/25 MG FILMTABLETTEN [Suspect]
     Active Substance: HYDROCHLOROTHIAZIDE\VALSARTAN
     Indication: HYPERTENSION
     Dosage: UNK
     Dates: start: 20140325, end: 20160618
  11. VALSARTAN/HCT MYLAN 160 MG/25 MG FILMTABLETTEN [Suspect]
     Active Substance: HYDROCHLOROTHIAZIDE\VALSARTAN
     Dosage: UNK,1 DOSAGE FORM: VALSARTAN 160 MG AND HYDROCHLOROTHIAZIDE 25 MG
  12. VALSARTAN/HYDROCHLOROTHIAZIDE TEVA [Suspect]
     Active Substance: HYDROCHLOROTHIAZIDE\VALSARTAN
     Indication: HYPERTENSION
     Dosage: UNK
     Dates: start: 20160903, end: 20180918
  13. VALSARTAN/HYDROCHLOROTHIAZIDE TEVA [Suspect]
     Active Substance: HYDROCHLOROTHIAZIDE\VALSARTAN
     Dosage: UNK
  14. LERCANIDIPINE TEVA [Concomitant]
     Dosage: UNK
  15. CHOLECALCIFEROL [Concomitant]
     Active Substance: CHOLECALCIFEROL
     Dosage: UNK UNK, QD
  16. CHOLECALCIFEROL MYLAN [Concomitant]
     Dosage: UNK
  17. CHOLECALCIFEROL ARROW [Concomitant]
     Dosage: UNK
  18. STRUCTOFLEX [Concomitant]
     Active Substance: GLUCOSAMINE
     Dosage: UNK

REACTIONS (4)
  - Ovarian cancer [Recovering/Resolving]
  - Gastrointestinal injury [Recovering/Resolving]
  - Product impurity [Unknown]
  - Malignant peritoneal neoplasm [Recovering/Resolving]
